FAERS Safety Report 23993203 (Version 1)
Quarter: 2024Q2

REPORT INFORMATION
  Report Type: Spontaneous
  Country: US (occurrence: US)
  Receive Date: 20240620
  Receipt Date: 20240620
  Transmission Date: 20240715
  Serious: Yes (Hospitalization, Other)
  Sender: FDA-Public Use
  Company Number: US-Pharmaxis-001223

PATIENT
  Age: 50 Year
  Sex: Female

DRUGS (4)
  1. MANNITOL [Suspect]
     Active Substance: MANNITOL
     Indication: Intraoperative care
     Route: 065
  2. SODIUM CHLORIDE [Concomitant]
     Active Substance: SODIUM CHLORIDE
     Indication: Postoperative care
     Dosage: 125 ML/H
     Route: 040
  3. SODIUM CHLORIDE [Concomitant]
     Active Substance: SODIUM CHLORIDE
     Indication: Postoperative care
     Dosage: 30 ML/H
     Route: 040
  4. PROCHLORPERAZINE [Concomitant]
     Active Substance: PROCHLORPERAZINE
     Indication: Nausea
     Route: 065

REACTIONS (4)
  - Hyponatraemic coma [Recovered/Resolved]
  - Pupil fixed [Recovered/Resolved]
  - Depression [Recovered/Resolved]
  - Brain oedema [Recovered/Resolved]
